FAERS Safety Report 6636625-2 (Version None)
Quarter: 2010Q1

REPORT INFORMATION
  Report Type: 
  Country: None (occurrence: None)
  Receive Date: 20100316
  Receipt Date: 20100311
  Transmission Date: 20100710
  Serious: Yes (Hospitalization)
  Sender: FDA-Public Use
  Company Number: US-MERCK-1002USA03502

PATIENT
  Age: 85 Year
  Sex: Female

DRUGS (1)
  1. INVANZ [Suspect]
     Indication: ESCHERICHIA INFECTION
     Route: 030
     Dates: start: 20100211

REACTIONS (4)
  - CONVULSION [None]
  - HALLUCINATION [None]
  - MUSCULAR WEAKNESS [None]
  - MYALGIA [None]
